FAERS Safety Report 9863926 (Version 4)
Quarter: 2014Q2

REPORT INFORMATION
  Report Type: Report from Study
  Country: US (occurrence: US)
  Receive Date: 20140203
  Receipt Date: 20140512
  Transmission Date: 20141212
  Serious: Yes (Hospitalization)
  Sender: FDA-Public Use
  Company Number: US-B.I. PHARMACEUTICALS,INC./RIDGEFIELD-2013-RU-00936BP

PATIENT
  Age: 69 Year
  Sex: Female
  Weight: 136 kg

DRUGS (14)
  1. DABIGATRAN [Suspect]
     Indication: CEREBROVASCULAR ACCIDENT PROPHYLAXIS
     Route: 065
     Dates: start: 20130610
  2. DABIGATRAN [Suspect]
     Indication: ATRIAL FIBRILLATION
  3. TRIAL PROCEDURE [Suspect]
     Indication: CEREBROVASCULAR ACCIDENT PROPHYLAXIS
     Route: 065
  4. TRIAL PROCEDURE [Suspect]
     Indication: ATRIAL FIBRILLATION
  5. PREDNISONE [Concomitant]
     Indication: ADRENAL INSUFFICIENCY
     Dosage: 10 MG
     Route: 048
     Dates: start: 20130709
  6. SODIUM BICARBONATE [Concomitant]
     Indication: RENAL FAILURE CHRONIC
     Dosage: 650 MG
     Route: 048
     Dates: start: 20130709
  7. BENADRYL [Concomitant]
     Indication: GASTRITIS
     Route: 065
     Dates: start: 20130709, end: 20130712
  8. ALBUTEROL [Concomitant]
     Indication: DYSPNOEA
     Route: 065
     Dates: start: 20130709, end: 20130709
  9. DIGOXIN [Concomitant]
     Indication: ARRHYTHMIA
     Dosage: 0.125 MG
     Route: 048
     Dates: start: 20130709
  10. METOPROLOL [Concomitant]
     Indication: HYPERTENSION
     Dosage: 100 MG
     Route: 048
     Dates: start: 20130709
  11. PRAVASTATIN [Concomitant]
     Indication: HYPERLIPIDAEMIA
     Dosage: 10 MG
     Route: 048
     Dates: start: 20130709
  12. ASPIRIN [Concomitant]
     Indication: ARRHYTHMIA PROPHYLAXIS
     Dosage: 325 MG
     Route: 048
     Dates: start: 20130709
  13. HYDROCODONE [Concomitant]
     Indication: CELLULITIS
     Route: 065
     Dates: start: 20130709
  14. PRILOSEC [Concomitant]
     Indication: GASTRITIS
     Dosage: 40 MG
     Route: 048
     Dates: start: 20130709

REACTIONS (4)
  - Gastritis [Recovered/Resolved]
  - Cholelithiasis [Recovered/Resolved]
  - Renal failure acute [Recovered/Resolved]
  - Urinary tract infection [Recovered/Resolved]
